FAERS Safety Report 4986862-8 (Version None)
Quarter: 2006Q2

REPORT INFORMATION
  Report Type: 
  Country: None (occurrence: None)
  Receive Date: 20060428
  Receipt Date: 20060302
  Transmission Date: 20061013
  Serious: Yes (Life-Threatening, Hospitalization)
  Sender: FDA-Public Use
  Company Number: DE-ABBOTT-06P-062-0326835-00

PATIENT
  Sex: Male
  Weight: 55 kg

DRUGS (3)
  1. ZEMPLAR [Suspect]
     Indication: HYPERPARATHYROIDISM SECONDARY
     Route: 042
     Dates: start: 20050610
  2. CARBAMAZEPINE [Concomitant]
     Indication: NEUROLOGICAL SYMPTOM
     Route: 048
  3. CARBAMAZEPINE [Concomitant]
     Indication: CONVULSION

REACTIONS (5)
  - BRAIN MASS [None]
  - CEREBRAL ISCHAEMIA [None]
  - CONVULSION [None]
  - HEADACHE [None]
  - NERVOUS SYSTEM DISORDER [None]
